FAERS Safety Report 4500206-7 (Version None)
Quarter: 2005Q1

REPORT INFORMATION
  Report Type: 
  Country: None (occurrence: None)
  Receive Date: 20041108
  Receipt Date: 20041028
  Transmission Date: 20050727
  Serious: Yes (Death, Life-Threatening)
  Sender: FDA-Public Use
  Company Number: 200410530BCA

PATIENT
  Age: 71 Year
  Sex: Male

DRUGS (8)
  1. PLASBUMIN-25 [Suspect]
     Indication: BLOOD PRESSURE DECREASED
     Dosage: SEE IMAGE
     Route: 042
     Dates: start: 20040703
  2. PLASBUMIN-25 [Suspect]
     Indication: HYPOTENSION
     Dosage: SEE IMAGE
     Route: 042
     Dates: start: 20040703
  3. PLASBUMIN-25 [Suspect]
     Indication: BLOOD PRESSURE DECREASED
     Dosage: SEE IMAGE
     Route: 042
     Dates: start: 20040703
  4. PLASBUMIN-25 [Suspect]
     Indication: HYPOTENSION
     Dosage: SEE IMAGE
     Route: 042
     Dates: start: 20040703
  5. PLASBUMIN-25 [Suspect]
     Indication: BLOOD PRESSURE DECREASED
     Dosage: SEE IMAGE
     Route: 042
     Dates: start: 20040709
  6. PLASBUMIN-25 [Suspect]
     Indication: HYPOTENSION
     Dosage: SEE IMAGE
     Route: 042
     Dates: start: 20040709
  7. PLASBUMIN-25 [Suspect]
  8. PLASBUMIN-25 [Suspect]

REACTIONS (17)
  - ABDOMINAL INFECTION [None]
  - ACIDOSIS [None]
  - BACTERIAL INFECTION [None]
  - BLOOD PRESSURE DIASTOLIC DECREASED [None]
  - BLOOD PRESSURE SYSTOLIC INCREASED [None]
  - CANDIDIASIS [None]
  - CHILLS [None]
  - CONDITION AGGRAVATED [None]
  - COUGH [None]
  - DYSPNOEA [None]
  - HYPERSENSITIVITY [None]
  - HYPOTENSION [None]
  - PHARMACEUTICAL PRODUCT COMPLAINT [None]
  - RENAL IMPAIRMENT [None]
  - SHOCK [None]
  - STAPHYLOCOCCAL INFECTION [None]
  - TACHYCARDIA [None]
